FAERS Safety Report 4370004-6 (Version None)
Quarter: 2004Q2

REPORT INFORMATION
  Report Type: 
  Country: None (occurrence: None)
  Receive Date: 20040603
  Receipt Date: 20040525
  Transmission Date: 20050107
  Serious: Yes (Disabling)
  Sender: FDA-Public Use
  Company Number: JP-GLAXOSMITHKLINE-B0333960A

PATIENT
  Age: 22 Year
  Sex: Male

DRUGS (4)
  1. PAXIL [Suspect]
     Indication: DEPRESSION
     Route: 048
     Dates: start: 20040427, end: 20040524
  2. GASMOTIN [Concomitant]
     Route: 048
  3. LENDORM [Concomitant]
     Route: 048
  4. DEPAS [Concomitant]
     Route: 048

REACTIONS (1)
  - PROTEIN URINE PRESENT [None]
